FAERS Safety Report 7586037-2 (Version None)
Quarter: 2011Q2

REPORT INFORMATION
  Report Type: 
  Country: None (occurrence: None)
  Receive Date: 20110629
  Receipt Date: 20110629
  Transmission Date: 20111010
  Serious: Yes (Life-Threatening, Other)
  Sender: FDA-Public Use
  Company Number: None

PATIENT
  Sex: Male
  Weight: 145.151 kg

DRUGS (3)
  1. LOVASTATIN [Concomitant]
  2. GLYBURIDE AND METFORMIN HYDROCHLORIDE [Concomitant]
  3. ACTOS [Suspect]
     Indication: DIABETES MELLITUS
     Dosage: 1 TABLET DAILY

REACTIONS (1)
  - BLADDER CANCER STAGE III [None]
